FAERS Safety Report 12749751 (Version 1)
Quarter: 2016Q3

REPORT INFORMATION
  Report Type: Spontaneous
  Country: US (occurrence: US)
  Receive Date: 20160915
  Receipt Date: 20160915
  Transmission Date: 20161109
  Serious: No
  Sender: FDA-Public Use
  Company Number: US-ASTELLAS-2016US017249

PATIENT
  Age: 61 Year
  Sex: Male

DRUGS (2)
  1. XTANDI [Suspect]
     Active Substance: ENZALUTAMIDE
     Indication: METASTASES TO BONE
  2. XTANDI [Suspect]
     Active Substance: ENZALUTAMIDE
     Indication: PROSTATE CANCER
     Dosage: 160 MG (40 MG X 4 CAPSULES), ONCE DAILY
     Route: 065

REACTIONS (9)
  - Decreased appetite [Unknown]
  - Libido increased [Unknown]
  - Pain [Unknown]
  - Somnolence [Unknown]
  - Depressed mood [Unknown]
  - Weight decreased [Unknown]
  - Fatigue [Unknown]
  - Prostatic specific antigen increased [Unknown]
  - Hypertension [Unknown]

NARRATIVE: CASE EVENT DATE: 2016
